FAERS Safety Report 8999517 (Version 1)
Quarter: 2013Q1

REPORT INFORMATION
  Report Type: Report from Study
  Country: US (occurrence: US)
  Receive Date: 20130103
  Receipt Date: 20130103
  Transmission Date: 20140127
  Serious: Yes (Hospitalization)
  Sender: FDA-Public Use
  Company Number: US-ROCHE-1176084

PATIENT
  Age: 45 Year
  Sex: Female
  Weight: 98 kg

DRUGS (5)
  1. BEVACIZUMAB [Suspect]
     Indication: OVARIAN EPITHELIAL CANCER
     Dosage: MOST RECENT DOSE: 14 NOV 2012
     Route: 042
     Dates: start: 20121022
  2. CISPLATIN [Suspect]
     Indication: OVARIAN EPITHELIAL CANCER
     Dosage: MOST RECENT DOSE: 14 NOV 2012
     Route: 033
     Dates: start: 20121022
  3. PACLITAXEL [Suspect]
     Indication: OVARIAN EPITHELIAL CANCER
     Dosage: MOST RECENT DOSE: 21 NOV 2012
     Route: 042
     Dates: start: 20121022
  4. PACLITAXEL [Suspect]
     Route: 033
  5. VELIPARIB [Suspect]
     Indication: OVARIAN EPITHELIAL CANCER
     Dosage: MOST RECENT DOSE: 26 NOV 2012
     Route: 048
     Dates: start: 20121022

REACTIONS (1)
  - Cerebrovascular accident [Unknown]
